FAERS Safety Report 19313496 (Version 1)
Quarter: 2021Q2

REPORT INFORMATION
  Report Type: Spontaneous
  Country: US (occurrence: US)
  Receive Date: 20210526
  Receipt Date: 20210526
  Transmission Date: 20210717
  Serious: Yes (Hospitalization)
  Sender: FDA-Public Use
  Company Number: None

PATIENT
  Sex: Male

DRUGS (11)
  1. AMOXICILLIN. [Concomitant]
     Active Substance: AMOXICILLIN
  2. LIPITOR [Concomitant]
     Active Substance: ATORVASTATIN CALCIUM
  3. CLONAZEP ODT [Concomitant]
  4. FAMOTIDINE. [Concomitant]
     Active Substance: FAMOTIDINE
  5. PREDNISONE. [Concomitant]
     Active Substance: PREDNISONE
  6. CLONAZEPAM. [Concomitant]
     Active Substance: CLONAZEPAM
  7. METHYLPRED [Concomitant]
     Active Substance: METHYLPREDNISOLONE
  8. IPRATROPIUM [Concomitant]
     Active Substance: IPRATROPIUM
  9. MAGNESIUM OX [Concomitant]
  10. AUSTEDO [Suspect]
     Active Substance: DEUTETRABENAZINE
     Indication: CHOREA
     Route: 048
     Dates: start: 20210427
  11. TAMSULOSIN [Concomitant]
     Active Substance: TAMSULOSIN

REACTIONS (1)
  - Hospitalisation [None]
